FAERS Safety Report 5685307-2 (Version None)
Quarter: 2008Q1

REPORT INFORMATION
  Report Type: 
  Country: None (occurrence: None)
  Receive Date: 20080328
  Receipt Date: 20080318
  Transmission Date: 20080703
  Serious: Yes (Other)
  Sender: FDA-Public Use
  Company Number: TW-PFIZER INC-2008021394

PATIENT
  Age: 54 Year
  Sex: Female

DRUGS (1)
  1. LIPITOR [Suspect]
     Indication: HYPERCHOLESTEROLAEMIA
     Route: 048

REACTIONS (8)
  - CHEST PAIN [None]
  - CONSTIPATION [None]
  - JOINT SWELLING [None]
  - MUSCLE RIGIDITY [None]
  - OPTIC ATROPHY [None]
  - VISION BLURRED [None]
  - VISUAL FIELD DEFECT [None]
  - YELLOW SKIN [None]
